FAERS Safety Report 5633822-X (Version None)
Quarter: 2008Q1

REPORT INFORMATION
  Report Type: 
  Country: None (occurrence: None)
  Receive Date: 20080219
  Receipt Date: 20080208
  Transmission Date: 20080703
  Serious: Yes (Death)
  Sender: FDA-Public Use
  Company Number: 2008000150

PATIENT
  Age: 54 Year
  Sex: Female

DRUGS (10)
  1. ERLOTINIB (ERLOTINIB HCL) (TABLET) (ERLOTINIB HCL) [Suspect]
     Indication: NON-SMALL CELL LUNG CANCER
     Dosage: (150 MG,QD), ORAL
     Route: 048
     Dates: start: 20080110, end: 20080112
  2. RIZE (CLOTIAZEPAM) [Concomitant]
  3. CLONAZEPAM [Concomitant]
  4. METHYLCOBAL (MECOBALAMIN) [Concomitant]
  5. LOXONIN (LOXOPROFEN SODIUM) [Concomitant]
  6. PRIMPERAN TAB [Concomitant]
  7. AMITRIPTYLINE HCL [Concomitant]
  8. PURSENNID (SENNA LEAF) [Concomitant]
  9. DUROTEP [Concomitant]
  10. CAMLEED (ENPROSTIL) [Concomitant]

REACTIONS (9)
  - DEPRESSED LEVEL OF CONSCIOUSNESS [None]
  - HYPERKALAEMIA [None]
  - HYPERNATRAEMIA [None]
  - INTERSTITIAL LUNG DISEASE [None]
  - LOWER RESPIRATORY TRACT INFECTION BACTERIAL [None]
  - NO THERAPEUTIC RESPONSE [None]
  - PLATELET COUNT DECREASED [None]
  - PULMONARY TUBERCULOSIS [None]
  - RESPIRATORY FAILURE [None]
